FAERS Safety Report 5137706-5 (Version None)
Quarter: 2006Q4

REPORT INFORMATION
  Report Type: 
  Country: None (occurrence: None)
  Receive Date: 20061030
  Receipt Date: 20051220
  Transmission Date: 20070319
  Serious: No
  Sender: FDA-Public Use
  Company Number: US-GLAXOSMITHKLINE-A0586451A

PATIENT
  Sex: Female

DRUGS (9)
  1. ADVAIR HFA [Suspect]
     Indication: CHRONIC OBSTRUCTIVE PULMONARY DISEASE
     Dosage: 1PUFF TWICE PER DAY
     Route: 055
  2. METFORMIN HCL [Concomitant]
  3. GLYBURIDE [Concomitant]
  4. WATER PILL [Concomitant]
  5. ATENOLOL [Concomitant]
  6. ASPIRIN [Concomitant]
  7. LANTUS [Concomitant]
  8. ADVIL [Concomitant]
  9. VICODIN [Concomitant]

REACTIONS (1)
  - MUSCULOSKELETAL PAIN [None]
